FAERS Safety Report 14494985 (Version 2)
Quarter: 2018Q3

REPORT INFORMATION
  Report Type: Spontaneous
  Country: JP (occurrence: JP)
  Receive Date: 20180206
  Receipt Date: 20180703
  Transmission Date: 20181010
  Serious: Yes (Hospitalization)
  Sender: FDA-Public Use
  Company Number: JP-GE HEALTHCARE LIFE SCIENCES-2018CSU000565

PATIENT

DRUGS (1)
  1. OMNIPAQUE [Suspect]
     Active Substance: IOHEXOL
     Indication: PRODUCT USED FOR UNKNOWN INDICATION
     Dosage: 0.5 ML, SINGLE
     Route: 024
     Dates: start: 201801, end: 201801

REACTIONS (5)
  - Cardio-respiratory arrest [Not Recovered/Not Resolved]
  - Cardiac failure [Not Recovered/Not Resolved]
  - Shock [Not Recovered/Not Resolved]
  - Off label use [Unknown]
  - Pleural effusion [Not Recovered/Not Resolved]

NARRATIVE: CASE EVENT DATE: 201801
